FAERS Safety Report 8685030 (Version 4)
Quarter: 2013Q4

REPORT INFORMATION
  Report Type: Spontaneous
  Country: FR (occurrence: FR)
  Receive Date: 20120726
  Receipt Date: 20131031
  Transmission Date: 20140711
  Serious: Yes (Death)
  Sender: FDA-Public Use
  Company Number: FR-009507513-1207FRA003285

PATIENT
  Age: 15 Year
  Sex: Female

DRUGS (12)
  1. CANCIDAS [Suspect]
     Indication: BRONCHOPULMONARY ASPERGILLOSIS
     Dosage: UNK
     Route: 042
     Dates: start: 20120528, end: 20120530
  2. BACTRIM [Suspect]
     Indication: BRONCHOPULMONARY ASPERGILLOSIS
     Dosage: 1 DF, TIW
     Route: 042
     Dates: start: 20120428
  3. CLAVENTIN [Suspect]
     Indication: BRONCHOPULMONARY ASPERGILLOSIS
     Dosage: 1 DF, TID
     Route: 042
     Dates: start: 20120528, end: 20120604
  4. CIPROFLOXACIN [Suspect]
     Indication: BRONCHOPULMONARY ASPERGILLOSIS
     Dosage: UNK
     Dates: start: 20120528, end: 20120604
  5. VFEND [Interacting]
     Indication: BRONCHOPULMONARY ASPERGILLOSIS
     Dosage: 200 MG, BID
     Route: 042
     Dates: start: 20120514, end: 20120525
  6. VFEND [Interacting]
     Dosage: 200 MG, BID
     Route: 048
     Dates: start: 20120526, end: 20120531
  7. VANCOMYCIN MYLAN [Interacting]
     Indication: BRONCHOPULMONARY ASPERGILLOSIS
     Dosage: 2000 MG, QD
     Route: 042
     Dates: start: 20120522, end: 201205
  8. VANCOMYCIN MYLAN [Interacting]
     Dosage: 2250 MG, QD
     Route: 042
     Dates: start: 201205, end: 201205
  9. VANCOMYCIN MYLAN [Interacting]
     Dosage: 1800 MG, QD
     Route: 042
     Dates: start: 201205, end: 20120603
  10. GENTAMICIN [Interacting]
     Indication: BRONCHOPULMONARY ASPERGILLOSIS
     Dosage: UNK
     Route: 042
     Dates: start: 20120526, end: 20120530
  11. NEORAL [Interacting]
     Dosage: 100 MG, BID
     Route: 048
     Dates: start: 20120423, end: 20120531
  12. NEUPOGEN [Concomitant]
     Dosage: UNK
     Dates: start: 201204

REACTIONS (3)
  - Renal failure acute [Fatal]
  - Overdose [Unknown]
  - Overdose [Unknown]
